FAERS Safety Report 19956384 (Version 4)
Quarter: 2022Q4

REPORT INFORMATION
  Report Type: Spontaneous
  Country: IT (occurrence: IT)
  Receive Date: 20211014
  Receipt Date: 20221012
  Transmission Date: 20230113
  Serious: Yes (Other)
  Sender: FDA-Public Use
  Company Number: IT-KRKA-IT2021K08530LIT

PATIENT
  Age: 59 Year
  Sex: Female

DRUGS (1)
  1. IMATINIB [Suspect]
     Active Substance: IMATINIB
     Indication: Chronic myeloid leukaemia
     Dosage: 400 MILLIGRAM, QD (400 MG, PER DAY)
     Route: 065

REACTIONS (12)
  - Pyoderma gangrenosum [Recovering/Resolving]
  - Pain [Recovered/Resolved]
  - Skin ulcer [Recovered/Resolved]
  - Inflammation [Recovered/Resolved]
  - Neutrophilia [Recovered/Resolved]
  - Leukocytosis [Recovered/Resolved]
  - Wound [Recovered/Resolved]
  - Genital discharge [Recovered/Resolved]
  - Tissue injury [Recovered/Resolved]
  - Acute phase reaction [Recovered/Resolved]
  - Anaemia [Recovered/Resolved]
  - Erythema [Recovered/Resolved]
